FAERS Safety Report 18547012 (Version 1)
Quarter: 2020Q4

REPORT INFORMATION
  Report Type: Spontaneous
  Country: US (occurrence: US)
  Receive Date: 20201125
  Receipt Date: 20201125
  Transmission Date: 20210114
  Serious: No
  Sender: FDA-Public Use
  Company Number: US-PFIZER INC-2020461930

PATIENT
  Age: 73 Year
  Sex: Female
  Weight: 90.72 kg

DRUGS (2)
  1. LOSARTAN. [Suspect]
     Active Substance: LOSARTAN
     Indication: BLOOD PRESSURE ABNORMAL
     Dosage: 100 MG
  2. IBRANCE [Suspect]
     Active Substance: PALBOCICLIB
     Indication: NEOPLASM MALIGNANT
     Dosage: 125 MG, CYCLIC (ONCE A DAY FOR 3 WEEKS)
     Route: 048
     Dates: start: 201901

REACTIONS (2)
  - Fatigue [Not Recovered/Not Resolved]
  - Initial insomnia [Not Recovered/Not Resolved]
